FAERS Safety Report 8988126 (Version 3)
Quarter: 2013Q1

REPORT INFORMATION
  Report Type: Spontaneous
  Country: JP (occurrence: JP)
  Receive Date: 20121227
  Receipt Date: 20130215
  Transmission Date: 20140127
  Serious: Yes (Other)
  Sender: FDA-Public Use
  Company Number: JP-ASTRAZENECA-2012SE95425

PATIENT
  Age: 82 Year
  Sex: Male

DRUGS (2)
  1. SEROQUEL [Suspect]
     Route: 048
  2. GRAMALIL [Suspect]
     Route: 048

REACTIONS (1)
  - Hepatic function abnormal [Recovered/Resolved]
